FAERS Safety Report 8395457-8 (Version None)
Quarter: 2012Q2

REPORT INFORMATION
  Report Type: 
  Country: None (occurrence: None)
  Receive Date: 20120530
  Receipt Date: 20111103
  Transmission Date: 20120825
  Serious: Yes (Death, Life-Threatening)
  Sender: FDA-Public Use
  Company Number: TW-BAYER-2011-050359

PATIENT
  Age: 37 Year
  Sex: Female
  Weight: 44.4 kg

DRUGS (18)
  1. LAMIVUDINE [Concomitant]
     Indication: HEPATITIS B
     Dosage: 100 MG
     Route: 048
     Dates: start: 20110318, end: 20110610
  2. CHLORAMPHENICOL [Concomitant]
     Indication: RASH
     Dosage: 10MG/G
     Route: 061
     Dates: start: 20110420, end: 20110610
  3. MEK INHIBITOR (DIHYDROXYPROP-DIFLU-METHOXYPHEN-CYCLOPROPA-SULFAMI) [Suspect]
     Indication: HEPATIC NEOPLASM MALIGNANT
     Dosage: 50 MG, BID, CYCLE 1
     Route: 048
     Dates: start: 20110318, end: 20110326
  4. MEK INHIBITOR (DIHYDROXYPROP-DIFLU-METHOXYPHEN-CYCLOPROPA-SULFAMI) [Suspect]
     Dosage: 30 MG, BID, CYCLE 3
     Route: 048
     Dates: start: 20110429, end: 20110511
  5. SORAFENIB (RAF KINASE INHIBITOR) [Suspect]
     Dosage: UNK, CYCLE 1
     Dates: start: 20110318, end: 20110326
  6. CUTIVATE [Concomitant]
     Indication: RASH
     Dosage: 0.05%-5G TUBE
     Route: 061
     Dates: start: 20110325, end: 20110330
  7. MEK INHIBITOR (DIHYDROXYPROP-DIFLU-METHOXYPHEN-CYCLOPROPA-SULFAMI) [Suspect]
     Dosage: 50 MG, BID, CYCLE  2
     Route: 048
     Dates: start: 20110405, end: 20110416
  8. SORAFENIB (RAF KINASE INHIBITOR) [Suspect]
     Dosage: UNK, CYCLE 4
     Dates: start: 20110520, end: 20110607
  9. ACETAMINOPHEN [Concomitant]
     Indication: HEADACHE
     Dosage: DAILY DOSE 500 MG
     Route: 048
     Dates: start: 20110328
  10. SORAFENIB (RAF KINASE INHIBITOR) [Suspect]
     Dosage: UNK, CYCLE 2
     Dates: start: 20110418, end: 20110428
  11. SMECTA [SMECTITE] [Concomitant]
     Indication: DIARRHOEA
     Dosage: 1 PACK
     Route: 048
     Dates: start: 20110415
  12. COUGH AND COLD PREPARATIONS [Concomitant]
     Indication: COUGH
     Dosage: 10ML
     Route: 048
     Dates: start: 20110520
  13. MEK INHIBITOR (DIHYDROXYPROP-DIFLU-METHOXYPHEN-CYCLOPROPA-SULFAMI) [Suspect]
     Dosage: 30 MG, BID, CYCLE 4
     Route: 048
     Dates: start: 20110520, end: 20110606
  14. DOXYCYCLINE HCL SAWAI [Concomitant]
     Indication: RASH
     Dosage: UNK
     Route: 048
     Dates: start: 20110325, end: 20110328
  15. MEK INHIBITOR (DIHYDROXYPROP-DIFLU-METHOXYPHEN-CYCLOPROPA-SULFAMI) [Suspect]
     Dosage: 50 MG, BID, CYCLE 2
     Route: 048
     Dates: start: 20110418, end: 20110428
  16. SORAFENIB (RAF KINASE INHIBITOR) [Suspect]
     Dosage: UNK, CYCLE 2
     Dates: start: 20110405, end: 20110416
  17. SORAFENIB (RAF KINASE INHIBITOR) [Suspect]
     Dosage: UNK, CYCLE 3
     Dates: start: 20110429, end: 20110429
  18. SORAFENIB (RAF KINASE INHIBITOR) [Suspect]
     Dosage: UNK, CYCLE 3
     Dates: start: 20110430, end: 20110511

REACTIONS (2)
  - DEATH [None]
  - CONVULSION [None]
